FAERS Safety Report 21450174 (Version 1)
Quarter: 2022Q4

REPORT INFORMATION
  Report Type: Spontaneous
  Country: US (occurrence: US)
  Receive Date: 20221013
  Receipt Date: 20221013
  Transmission Date: 20230113
  Serious: Yes (Hospitalization, Other)
  Sender: FDA-Public Use
  Company Number: US-MSNLABS-2022MSNLIT01224

PATIENT

DRUGS (6)
  1. ATORVASTATIN [Suspect]
     Active Substance: ATORVASTATIN
     Indication: Hypertriglyceridaemia
     Dosage: 40 MG/DAY
     Route: 065
  2. INSULIN NOS [Suspect]
     Active Substance: INSULIN NOS
     Indication: Diabetes mellitus management
     Route: 058
  3. FENOFIBRATE [Suspect]
     Active Substance: FENOFIBRATE
     Indication: Hypertriglyceridaemia
     Dosage: 145 MG/DAY
     Route: 065
  4. ICOSAPENT ETHYL [Suspect]
     Active Substance: ICOSAPENT ETHYL
     Indication: Hypertriglyceridaemia
     Dosage: 2 G TWICE DAILY
     Route: 065
  5. FISH OIL [Suspect]
     Active Substance: FISH OIL
     Indication: Hypertriglyceridaemia
     Route: 065
  6. EZETIMIBE [Suspect]
     Active Substance: EZETIMIBE
     Indication: Hypertriglyceridaemia
     Route: 065

REACTIONS (1)
  - Drug ineffective [Unknown]
